FAERS Safety Report 25030722 (Version 1)
Quarter: 2025Q1

REPORT INFORMATION
  Report Type: Spontaneous
  Country: CH (occurrence: CH)
  Receive Date: 20250303
  Receipt Date: 20250303
  Transmission Date: 20250409
  Serious: Yes (Other)
  Sender: TAKEDA
  Company Number: CH-TAKEDA-2024TUS115342

PATIENT
  Sex: Female

DRUGS (2)
  1. ALUNBRIG [Suspect]
     Active Substance: BRIGATINIB
     Indication: Meningioma
  2. ALUNBRIG [Suspect]
     Active Substance: BRIGATINIB
     Indication: Neurofibromatosis

REACTIONS (3)
  - Meningioma [Unknown]
  - Neurofibromatosis [Unknown]
  - Off label use [Unknown]
